FAERS Safety Report 5131620-7 (Version None)
Quarter: 2006Q4

REPORT INFORMATION
  Report Type: 
  Country: None (occurrence: None)
  Receive Date: 20061020
  Receipt Date: 20061009
  Transmission Date: 20070319
  Serious: Yes (Other)
  Sender: FDA-Public Use
  Company Number: GR-BRISTOL-MYERS SQUIBB COMPANY-13535273

PATIENT
  Age: 62 Year
  Sex: Male

DRUGS (2)
  1. TAXOL [Suspect]
     Indication: NEOPLASM MALIGNANT
  2. DOXORUBICIN HCL [Suspect]
     Indication: NEOPLASM MALIGNANT

REACTIONS (3)
  - FACE OEDEMA [None]
  - PALMAR-PLANTAR ERYTHRODYSAESTHESIA SYNDROME [None]
  - SKIN TOXICITY [None]
